FAERS Safety Report 4698801-8 (Version None)
Quarter: 2005Q2

REPORT INFORMATION
  Report Type: 
  Country: None (occurrence: None)
  Receive Date: 20050621
  Receipt Date: 20040818
  Transmission Date: 20051028
  Serious: Yes (Other)
  Sender: FDA-Public Use
  Company Number: PHEH2004US09146

PATIENT
  Age: 77 Year
  Sex: Female

DRUGS (2)
  1. EXELON [Suspect]
     Dosage: 1.5 MG, BID, ORAL
     Route: 048
     Dates: start: 20040401
  2. ANTIHYPERTENSIVE DRUGS (NO INGREDIENTS/SUBTANCES) [Concomitant]

REACTIONS (2)
  - BLOOD CREATINE INCREASED [None]
  - RENAL FAILURE [None]
